FAERS Safety Report 20809306 (Version 1)
Quarter: 2022Q2

REPORT INFORMATION
  Report Type: Spontaneous
  Country: US (occurrence: US)
  Receive Date: 20220510
  Receipt Date: 20220510
  Transmission Date: 20220721
  Serious: Yes (Other)
  Sender: FDA-Public Use
  Company Number: US-BEH-2022145211

PATIENT
  Sex: Female

DRUGS (1)
  1. PRIVIGEN [Suspect]
     Active Substance: HUMAN IMMUNOGLOBULIN G
     Indication: Systemic lupus erythematosus
     Dosage: 40 GRAM, QMT
     Route: 042
     Dates: start: 20210917

REACTIONS (4)
  - Pneumonia [Unknown]
  - No adverse event [Unknown]
  - Off label use [Unknown]
  - Rib fracture [Unknown]
